FAERS Safety Report 15698036 (Version 1)
Quarter: 2018Q4

REPORT INFORMATION
  Report Type: Spontaneous
  Country: US (occurrence: US)
  Receive Date: 20181206
  Receipt Date: 20181206
  Transmission Date: 20190205
  Serious: Yes (Other)
  Sender: FDA-Public Use
  Company Number: None

PATIENT
  Age: 37 Year
  Sex: Female
  Weight: 81.9 kg

DRUGS (11)
  1. AMITRIPTYLINE [Concomitant]
     Active Substance: AMITRIPTYLINE
  2. ZOFRAN [Concomitant]
     Active Substance: ONDANSETRON HYDROCHLORIDE
  3. TORADOL [Concomitant]
     Active Substance: KETOROLAC TROMETHAMINE
  4. FIORCET [Concomitant]
  5. D BISACODIL [Concomitant]
  6. PROCHLORPERAZINE. [Concomitant]
     Active Substance: PROCHLORPERAZINE
  7. DILTIAZEM. [Concomitant]
     Active Substance: DILTIAZEM
  8. MEMANTINE. [Concomitant]
     Active Substance: MEMANTINE
  9. MIGRINAL [Concomitant]
  10. MORFINE ER [Concomitant]
  11. AIMOVIG [Suspect]
     Active Substance: ERENUMAB-AOOE
     Indication: MIGRAINE
     Dosage: ?          QUANTITY:2 INJECTION(S);OTHER FREQUENCY:MONTHLY;?
     Route: 058
     Dates: start: 20180921, end: 20181127

REACTIONS (15)
  - Pain [None]
  - Dizziness [None]
  - Crying [None]
  - Treatment failure [None]
  - Nausea [None]
  - Vertigo [None]
  - Headache [None]
  - Jaw disorder [None]
  - Vomiting [None]
  - Auditory disorder [None]
  - Photopsia [None]
  - Migraine with aura [None]
  - Influenza like illness [None]
  - Burning sensation [None]
  - Hypoaesthesia [None]

NARRATIVE: CASE EVENT DATE: 20181127
